FAERS Safety Report 17002891 (Version 2)
Quarter: 2020Q1

REPORT INFORMATION
  Report Type: Spontaneous
  Country: US (occurrence: US)
  Receive Date: 20191107
  Receipt Date: 20200103
  Transmission Date: 20200409
  Serious: Yes (Hospitalization, Other)
  Sender: FDA-Public Use
  Company Number: US-DRREDDYS-USA/USA/19/0115757

PATIENT
  Age: 55 Year
  Sex: Male

DRUGS (2)
  1. IBUPROFEN. [Suspect]
     Active Substance: IBUPROFEN
     Indication: HEADACHE
     Dosage: 3 HOURS PRIOR TO PRESENTATION
     Route: 048
  2. IBUPROFEN. [Suspect]
     Active Substance: IBUPROFEN
     Indication: PAIN IN JAW
     Dosage: 7 HOURS PRIOR TO PRESENTATION
     Route: 048

REACTIONS (4)
  - Facial paralysis [Recovered/Resolved]
  - Aphasia [Recovered/Resolved]
  - Encephalitis [Recovered/Resolved]
  - Hemiparesis [Recovered/Resolved]
